FAERS Safety Report 8792189 (Version 2)
Quarter: 2012Q4

REPORT INFORMATION
  Report Type: 
  Country: US (occurrence: US)
  Receive Date: 20120918
  Receipt Date: 20121018
  Transmission Date: 20130627
  Serious: No
  Sender: FDA-Public Use
  Company Number: US-VERTEX PHARMACEUTICAL INC.-AE-2012-011026

PATIENT
  Age: 47 None
  Sex: Male
  Weight: 81 kg

DRUGS (10)
  1. INCIVEK [Suspect]
     Indication: HEPATITIS C
     Dosage: 2250 mg, UNK
     Route: 048
     Dates: start: 20120619
  2. INCIVEK [Suspect]
     Dosage: 375 mg, bid
     Route: 048
     Dates: start: 20120820, end: 20120826
  3. INCIVEK [Suspect]
     Dosage: UNK
  4. RIBAVIRIN [Suspect]
     Indication: HEPATITIS C
     Dosage: 600 mg, bid
     Route: 048
     Dates: start: 20120619
  5. RIBAVIRIN [Suspect]
     Dosage: 1000 mg, qd
     Dates: start: 20120827
  6. RIBAVIRIN [Suspect]
     Dosage: 300 mg, bid
  7. PEGASYS [Suspect]
     Indication: HEPATITIS C
     Dosage: 180 ?g, UNK
     Route: 058
     Dates: start: 20120619
  8. NASACORT [Concomitant]
     Indication: HYPERSENSITIVITY
     Dosage: UNK, qd
  9. DIOVAN [Concomitant]
     Indication: HYPERTENSION
     Dosage: UNK, qd
     Route: 048
  10. VENTOLIN                           /00139501/ [Concomitant]
     Indication: ASTHMA

REACTIONS (10)
  - Underdose [Unknown]
  - Dyspnoea [Not Recovered/Not Resolved]
  - Headache [Not Recovered/Not Resolved]
  - Eye irritation [Not Recovered/Not Resolved]
  - Dizziness [Not Recovered/Not Resolved]
  - Dry eye [Not Recovered/Not Resolved]
  - Asthenia [Not Recovered/Not Resolved]
  - Fatigue [Not Recovered/Not Resolved]
  - Rash papular [Recovered/Resolved]
  - Anaemia [Unknown]
